FAERS Safety Report 4269201-X (Version None)
Quarter: 2004Q1

REPORT INFORMATION
  Report Type: 
  Country: None (occurrence: None)
  Receive Date: 20040113
  Receipt Date: 20031203
  Transmission Date: 20041129
  Serious: Yes (Other)
  Sender: FDA-Public Use
  Company Number: NL-GLAXOSMITHKLINE-B0317113A

PATIENT
  Age: 45 Year
  Sex: Male

DRUGS (1)
  1. SERETIDE [Suspect]

REACTIONS (1)
  - CEREBRAL HAEMORRHAGE [None]
